FAERS Safety Report 6465512-8 (Version None)
Quarter: 2009Q4

REPORT INFORMATION
  Report Type: 
  Country: None (occurrence: None)
  Receive Date: 20091124
  Receipt Date: 20091116
  Transmission Date: 20100525
  Serious: Yes (Other)
  Sender: FDA-Public Use
  Company Number: 2009AL007334

PATIENT
  Age: 62 Year
  Sex: Male

DRUGS (3)
  1. IRINOTECAN HYDROCHLORIDE [Suspect]
     Indication: GASTROINTESTINAL CARCINOMA
     Dosage: 660 MG; XI; IV
     Route: 042
     Dates: start: 20061006, end: 20061020
  2. ATROPINE [Concomitant]
  3. PREDNISOLONE [Concomitant]

REACTIONS (2)
  - MONOPARESIS [None]
  - MUSCULAR WEAKNESS [None]
